FAERS Safety Report 7627948-9 (Version None)
Quarter: 2011Q3

REPORT INFORMATION
  Report Type: 
  Country: None (occurrence: None)
  Receive Date: 20110722
  Receipt Date: 20110713
  Transmission Date: 20111222
  Serious: Yes (Other)
  Sender: FDA-Public Use
  Company Number: FR-BRISTOL-MYERS SQUIBB COMPANY-15788524

PATIENT
  Age: 54 Year
  Sex: Female
  Weight: 90 kg

DRUGS (1)
  1. ABILIFY [Suspect]
     Indication: BIPOLAR DISORDER
     Dates: start: 20110501, end: 20110601

REACTIONS (6)
  - VISION BLURRED [None]
  - NAUSEA [None]
  - DIPLOPIA [None]
  - VERTIGO [None]
  - DIZZINESS [None]
  - HEADACHE [None]
